FAERS Safety Report 12670798 (Version 1)
Quarter: 2016Q3

REPORT INFORMATION
  Report Type: Spontaneous
  Country: US (occurrence: US)
  Receive Date: 20160822
  Receipt Date: 20160822
  Transmission Date: 20161109
  Serious: No
  Sender: FDA-Public Use
  Company Number: US-JAZZ-2016-US-006192

PATIENT
  Sex: Male

DRUGS (19)
  1. ATIVAN [Concomitant]
     Active Substance: LORAZEPAM
  2. GRALISE ER [Concomitant]
  3. VOLTAREN [Concomitant]
     Active Substance: DICLOFENAC SODIUM
  4. CHLORTHALIDONE. [Concomitant]
     Active Substance: CHLORTHALIDONE
  5. ZOLPIDEM TARTRATE. [Concomitant]
     Active Substance: ZOLPIDEM TARTRATE
  6. SOMA [Concomitant]
     Active Substance: CARISOPRODOL
  7. XYREM [Suspect]
     Active Substance: SODIUM OXYBATE
     Indication: SOMNOLENCE
     Dosage: 2.25 G, BID
     Route: 048
     Dates: start: 201405, end: 201406
  8. PREDNISONE. [Concomitant]
     Active Substance: PREDNISONE
  9. XYREM [Suspect]
     Active Substance: SODIUM OXYBATE
     Dosage: DOSE ADJUSTMENTS
     Route: 048
  10. XYREM [Suspect]
     Active Substance: SODIUM OXYBATE
     Dosage: 3.25 G, BID
     Route: 048
     Dates: start: 201508, end: 2015
  11. AVONEX [Concomitant]
     Active Substance: INTERFERON BETA-1A
  12. PRILOSEC [Concomitant]
     Active Substance: OMEPRAZOLE MAGNESIUM
  13. MAGNESIUM GLUCONICUM [Concomitant]
  14. BENADRYL ALLERGY [Concomitant]
     Active Substance: DIPHENHYDRAMINE HYDROCHLORIDE
  15. FLUOCINONIDE. [Concomitant]
     Active Substance: FLUOCINONIDE
  16. CRESTOR [Concomitant]
     Active Substance: ROSUVASTATIN CALCIUM
  17. LIMBREL [Concomitant]
     Active Substance: FLAVOCOXID
  18. SENTRA AM [Concomitant]
  19. THEOPHYLLINE ER [Concomitant]
     Active Substance: THEOPHYLLINE ANHYDROUS

REACTIONS (1)
  - Hypersensitivity [Unknown]
